FAERS Safety Report 19315733 (Version 1)
Quarter: 2021Q2

REPORT INFORMATION
  Report Type: Spontaneous
  Country: GB (occurrence: GB)
  Receive Date: 20210527
  Receipt Date: 20210527
  Transmission Date: 20210717
  Serious: Yes (Other)
  Sender: FDA-Public Use
  Company Number: GB-MYLANLABS-2021M1030851

PATIENT
  Sex: Male

DRUGS (1)
  1. CLOZARIL [Suspect]
     Active Substance: CLOZAPINE
     Indication: SCHIZOPHRENIA
     Dosage: UNK
     Route: 048
     Dates: start: 20030905

REACTIONS (7)
  - Dyspnoea [Unknown]
  - Delusion [Unknown]
  - Malaise [Unknown]
  - Urinary tract infection [Unknown]
  - Speech disorder [Unknown]
  - Gait inability [Unknown]
  - Headache [Unknown]
